FAERS Safety Report 5318211-X (Version None)
Quarter: 2007Q2

REPORT INFORMATION
  Report Type: 
  Country: None (occurrence: None)
  Receive Date: 20070507
  Receipt Date: 20070502
  Transmission Date: 20071010
  Serious: Yes (Hospitalization)
  Sender: FDA-Public Use
  Company Number: US-GENENTECH-234221

PATIENT
  Sex: Female

DRUGS (4)
  1. BEVACIZUMAB [Suspect]
     Indication: NON-SMALL CELL LUNG CANCER
     Dosage: 15 MG/KG, Q3W
     Route: 042
     Dates: start: 20060717
  2. ERLOTINIB [Suspect]
     Indication: NON-SMALL CELL LUNG CANCER
  3. REGLAN [Concomitant]
     Indication: DRUG USE FOR UNKNOWN INDICATION
     Dosage: 5 MG, PRN
  4. PROCRIT [Concomitant]
     Indication: DRUG USE FOR UNKNOWN INDICATION
     Dosage: 40 UNK, 1/WEEK
     Dates: start: 20061211

REACTIONS (3)
  - ANAEMIA [None]
  - DIZZINESS [None]
  - FATIGUE [None]
